FAERS Safety Report 12270323 (Version 11)
Quarter: 2018Q4

REPORT INFORMATION
  Report Type: Report from Study
  Country: CA (occurrence: CA)
  Receive Date: 20160415
  Receipt Date: 20181212
  Transmission Date: 20190204
  Serious: Yes (Hospitalization, Other)
  Sender: FDA-Public Use
  Company Number: PHHY2015CA070031

PATIENT
  Age: 74 Year
  Sex: Male

DRUGS (14)
  1. XARELTO [Concomitant]
     Active Substance: RIVAROXABAN
     Indication: PRODUCT USED FOR UNKNOWN INDICATION
     Dosage: 20 MG, QD (DIE)
     Route: 048
  2. D-TABS [Concomitant]
     Active Substance: CHOLECALCIFEROL
     Indication: PRODUCT USED FOR UNKNOWN INDICATION
     Dosage: 10000 IU, QW
     Route: 048
  3. APO-OFLOXACIN [Concomitant]
     Indication: PRODUCT USED FOR UNKNOWN INDICATION
     Dosage: 0.3 %, QID
     Route: 065
  4. FENTANYL TRANSDERMAL SYSTEM [Concomitant]
     Active Substance: FENTANYL
     Indication: PRODUCT USED FOR UNKNOWN INDICATION
     Dosage: 25 UG/HR, EVERY 72 HOURS
     Route: 065
  5. SANDOSTATIN [Suspect]
     Active Substance: OCTREOTIDE ACETATE
     Dosage: 5 MG, UNK
     Route: 030
     Dates: start: 20150902
  6. SANDOSTATIN [Suspect]
     Active Substance: OCTREOTIDE ACETATE
     Dosage: 5 UG, TEST/ALLERGY
     Route: 058
     Dates: start: 20150902, end: 20150902
  7. SANDOSTATIN LAR DEPOT [Suspect]
     Active Substance: OCTREOTIDE ACETATE
     Indication: CARCINOID TUMOUR PULMONARY
     Dosage: 30 MG, QMO, ONCE A MONTH
     Route: 030
     Dates: start: 20150902
  8. SANDOSTATIN [Suspect]
     Active Substance: OCTREOTIDE ACETATE
     Indication: CARCINOID TUMOUR PULMONARY
     Dosage: UNK UG, ONCE/SINGLE
     Route: 058
     Dates: start: 20150605, end: 20150605
  9. LEVOFLOXACIN. [Concomitant]
     Active Substance: LEVOFLOXACIN
     Indication: PROPHYLAXIS
     Dosage: 500 MG, QD
     Route: 065
  10. ATENOLOL. [Concomitant]
     Active Substance: ATENOLOL
     Indication: PRODUCT USED FOR UNKNOWN INDICATION
     Dosage: UNK
     Route: 065
  11. MAR ATENOLOL [Concomitant]
     Indication: PRODUCT USED FOR UNKNOWN INDICATION
     Dosage: 25 MG, QD (DIE)
     Route: 048
  12. PRAVASTATIN. [Concomitant]
     Active Substance: PRAVASTATIN
     Indication: PRODUCT USED FOR UNKNOWN INDICATION
     Dosage: 20 MG, QD (DIE)
     Route: 048
  13. SANDOSTATIN [Suspect]
     Active Substance: OCTREOTIDE ACETATE
     Dosage: 450 UG, ONCE/SINGLE (TEST DOSE)
     Route: 058
     Dates: start: 20150902, end: 20150902
  14. TAMSULOSIN CR [Concomitant]
     Active Substance: TAMSULOSIN
     Indication: PRODUCT USED FOR UNKNOWN INDICATION
     Dosage: 0.4 MG, BID
     Route: 048

REACTIONS (31)
  - Bone cancer [Unknown]
  - Hypokinesia [Unknown]
  - Nasal congestion [Recovering/Resolving]
  - Bone pain [Unknown]
  - Mouth haemorrhage [Unknown]
  - Erythema [Unknown]
  - Oropharyngeal pain [Recovering/Resolving]
  - Injection site pain [Recovering/Resolving]
  - Product use in unapproved indication [Unknown]
  - Bradycardia [Unknown]
  - Peripheral swelling [Unknown]
  - Blood pressure systolic increased [Unknown]
  - Tremor [Recovering/Resolving]
  - Cervical radiculopathy [Unknown]
  - Chills [Unknown]
  - Injection site reaction [Recovering/Resolving]
  - Epistaxis [Unknown]
  - Rash [Unknown]
  - Injection site inflammation [Recovering/Resolving]
  - Injection site mass [Recovered/Resolved]
  - Pain [Unknown]
  - Cough [Recovering/Resolving]
  - Headache [Recovering/Resolving]
  - Injection site erythema [Unknown]
  - Injection site nerve damage [Unknown]
  - Incorrect dose administered [Unknown]
  - Sinus disorder [Unknown]
  - Fatigue [Unknown]
  - Dizziness [Recovering/Resolving]
  - Needle issue [Unknown]
  - Incorrect route of product administration [Unknown]

NARRATIVE: CASE EVENT DATE: 20150605
